FAERS Safety Report 8942078 (Version 1)
Quarter: 2012Q4

REPORT INFORMATION
  Report Type: 
  Country: US (occurrence: US)
  Receive Date: 20121203
  Receipt Date: 20121203
  Transmission Date: 20130627
  Serious: Yes (Hospitalization, Other)
  Sender: FDA-Public Use
  Company Number: US-PFIZER INC-2012302160

PATIENT
  Age: 74 Year
  Sex: Female
  Weight: 78.01 kg

DRUGS (6)
  1. LIPITOR [Suspect]
     Indication: HIGH CHOLESTEROL
     Dosage: 40 mg, daily
     Dates: start: 2002
  2. METOPROLOL TARTRATE [Suspect]
     Indication: HEART DISORDER
     Dosage: 6.25 mg, daily
     Dates: end: 2012
  3. METOPROLOL TARTRATE [Suspect]
     Dosage: 6.25 mg, 2x/day
     Dates: start: 2012, end: 2012
  4. ATORVASTATIN CALCIUM [Suspect]
     Indication: HIGH CHOLESTEROL
     Dosage: 40 mg, daily
     Dates: start: 2012, end: 20121126
  5. BENAZEPRIL [Concomitant]
     Indication: HEART DISORDER
     Dosage: 20 mg, daily
  6. CARVEDILOL [Concomitant]
     Indication: HEART DISORDER
     Dosage: 6.25 mg, 2x/day
     Dates: start: 2012

REACTIONS (4)
  - Cardiac disorder [Unknown]
  - Coronary artery occlusion [Unknown]
  - Weight increased [Unknown]
  - Circumstance or information capable of leading to medication error [Unknown]
